FAERS Safety Report 7261734-7 (Version None)
Quarter: 2011Q1

REPORT INFORMATION
  Report Type: 
  Country: None (occurrence: None)
  Receive Date: 20110130
  Receipt Date: 20101104
  Transmission Date: 20110831
  Serious: No
  Sender: FDA-Public Use
  Company Number: US-ABBOTT-10P-163-0683258-00

PATIENT
  Sex: Female
  Weight: 49.94 kg

DRUGS (4)
  1. LOSEASONIQUE [Concomitant]
     Indication: ORAL CONTRACEPTION
     Route: 048
  2. HUMIRA [Suspect]
     Indication: CROHN'S DISEASE
     Route: 058
     Dates: start: 20101020
  3. ABILIFY [Concomitant]
     Indication: BIPOLAR DISORDER
     Route: 048
  4. ZOLOFT [Concomitant]
     Indication: DEPRESSION
     Route: 048

REACTIONS (2)
  - INJECTION SITE PAIN [None]
  - DEVICE MALFUNCTION [None]
